FAERS Safety Report 6680243-7 (Version None)
Quarter: 2010Q2

REPORT INFORMATION
  Report Type: 
  Country: None (occurrence: None)
  Receive Date: 20100409
  Receipt Date: 20100329
  Transmission Date: 20101027
  Serious: Yes (Death, Life-Threatening, Other)
  Sender: FDA-Public Use
  Company Number: AXC-2010-000083

PATIENT
  Age: 59 Year
  Sex: Female

DRUGS (2)
  1. SUCRALFATE [Suspect]
     Indication: PROPHYLAXIS AGAINST GASTROINTESTINAL ULCER
     Dosage: 5 ML, Q4H, INTRGASTRIC
     Dates: start: 19910905, end: 19910915
  2. AMIKACIN [Concomitant]

REACTIONS (9)
  - ACCIDENTAL EXPOSURE [None]
  - ANASTOMOTIC COMPLICATION [None]
  - DEVICE DISLOCATION [None]
  - DEVICE LEAKAGE [None]
  - DIALYSIS [None]
  - FEEDING TUBE COMPLICATION [None]
  - GASTRIC PERFORATION [None]
  - IATROGENIC INJURY [None]
  - POSTRENAL FAILURE [None]
